FAERS Safety Report 7492619-9 (Version None)
Quarter: 2011Q2

REPORT INFORMATION
  Report Type: 
  Country: None (occurrence: None)
  Receive Date: 20110519
  Receipt Date: 20110510
  Transmission Date: 20111010
  Serious: Yes (Other)
  Sender: FDA-Public Use
  Company Number: CA-ELI_LILLY_AND_COMPANY-CA201011006764

PATIENT
  Age: 77 Year
  Sex: Female

DRUGS (9)
  1. DIOVAN [Concomitant]
  2. PRAZOSIN HCL [Concomitant]
  3. DIURETICS [Concomitant]
  4. SOTALOL HCL [Concomitant]
  5. LIPITOR [Concomitant]
  6. HYDROCHLOROTHIAZIDE [Concomitant]
  7. FORTEO [Suspect]
     Indication: OSTEOPOROSIS
     Dosage: 20 UG, DAILY (1/D)
     Route: 058
     Dates: start: 20080824, end: 20080830
  8. FORTEO [Suspect]
     Dosage: 20 UG, QD
     Route: 058
     Dates: start: 20100824
  9. WARFARIN SODIUM [Concomitant]

REACTIONS (3)
  - FATIGUE [None]
  - LABILE HYPERTENSION [None]
  - BLOOD PRESSURE DECREASED [None]
